FAERS Safety Report 21168570 (Version 1)
Quarter: 2022Q3

REPORT INFORMATION
  Report Type: Other
  Country: US (occurrence: None)
  Receive Date: 20220803
  Receipt Date: 20220803
  Transmission Date: 20221027
  Serious: No
  Sender: FDA-Public Use
  Company Number: US-ROCHE-3152737

PATIENT
  Age: 57 Year
  Sex: Male
  Weight: 102.15 kg

DRUGS (3)
  1. OCREVUS [Suspect]
     Active Substance: OCRELIZUMAB
     Indication: Relapsing-remitting multiple sclerosis
     Dosage: 10/SEP/2019, 05/MAY/2020, 02/NOV/2020, 13/JUL/2021, 13/JAN/2022
     Route: 042
     Dates: start: 201909
  2. CYMBALTA [Concomitant]
     Active Substance: DULOXETINE HYDROCHLORIDE
     Indication: Anxiety
     Route: 048
     Dates: start: 201912
  3. CYMBALTA [Concomitant]
     Active Substance: DULOXETINE HYDROCHLORIDE
     Indication: Neuralgia

REACTIONS (3)
  - Vitamin B12 deficiency [Unknown]
  - Anaemia [Unknown]
  - COVID-19 [Recovered/Resolved]

NARRATIVE: CASE EVENT DATE: 20211223
